FAERS Safety Report 7721557-9 (Version None)
Quarter: 2011Q3

REPORT INFORMATION
  Report Type: 
  Country: None (occurrence: None)
  Receive Date: 20110831
  Receipt Date: 20110811
  Transmission Date: 20111222
  Serious: Yes (Hospitalization)
  Sender: FDA-Public Use
  Company Number: BE-GENZYME-CLOF-1001648

PATIENT
  Sex: Female
  Weight: 67 kg

DRUGS (2)
  1. TACROLIMUS [Concomitant]
     Indication: ACUTE LEUKAEMIA
     Dosage: UNK
     Route: 065
  2. EVOLTRA [Suspect]
     Indication: ACUTE LEUKAEMIA
     Dosage: UNK
     Route: 065

REACTIONS (3)
  - RENAL FAILURE ACUTE [None]
  - TOXICITY TO VARIOUS AGENTS [None]
  - MYALGIA [None]
